FAERS Safety Report 4613242-7 (Version None)
Quarter: 2005Q1

REPORT INFORMATION
  Report Type: 
  Country: None (occurrence: None)
  Receive Date: 20050315
  Receipt Date: 20050307
  Transmission Date: 20050727
  Serious: Yes (Death, Life-Threatening, Hospitalization, Other)
  Sender: FDA-Public Use
  Company Number: 2005011818

PATIENT
  Age: 89 Year
  Sex: Male

DRUGS (10)
  1. FOSPHENYTOIN SODIUM [Suspect]
     Indication: EPILEPSY
     Dates: start: 20040923, end: 20040927
  2. WARFARIN SODIUM [Suspect]
     Indication: ATRIAL FIBRILLATION
     Dosage: 2.5 MG, ORAL
     Route: 048
     Dates: start: 19880101, end: 20040922
  3. TRIMETHOPRIM-SULFAMETHOXAZOLE [Suspect]
     Indication: PYREXIA
     Dosage: 20 ML (20 ML, 1 IN 1D)
     Dates: start: 20040923
  4. DIAZEPAM [Concomitant]
  5. VALPROIC ACID [Concomitant]
  6. TIMOLOL MALEATE [Concomitant]
  7. SERTRALINE HCL [Concomitant]
  8. SOTALOL HCL [Concomitant]
  9. ALL OTHER THERAPEUTIC PRODUCTS (ALL OTHER THERAPEUTIC PRODUCTS) [Concomitant]
  10. TOLTERODINE TARTRATE [Concomitant]

REACTIONS (20)
  - ATRIAL FIBRILLATION [None]
  - BLOOD URINE PRESENT [None]
  - C-REACTIVE PROTEIN INCREASED [None]
  - CEREBRAL HAEMORRHAGE [None]
  - DEPRESSION [None]
  - DRUG INTERACTION [None]
  - FALL [None]
  - GENERAL PHYSICAL HEALTH DETERIORATION [None]
  - GLAUCOMA [None]
  - HAEMOGLOBIN DECREASED [None]
  - HAEMORRHAGE [None]
  - HIP FRACTURE [None]
  - INFECTION [None]
  - INTERNATIONAL NORMALISED RATIO INCREASED [None]
  - LOSS OF CONSCIOUSNESS [None]
  - MEMORY IMPAIRMENT [None]
  - MYOCARDIAL INFARCTION [None]
  - PYREXIA [None]
  - STATUS EPILEPTICUS [None]
  - URINARY TRACT DISORDER [None]
